FAERS Safety Report 17877945 (Version 1)
Quarter: 2020Q2

REPORT INFORMATION
  Report Type: Other
  Country: DE (occurrence: DE)
  Receive Date: 20200610
  Receipt Date: 20200610
  Transmission Date: 20200714
  Serious: Yes (Hospitalization, Other)
  Sender: FDA-Public Use
  Company Number: DE-DENTSPLY-2020SCDP000191

PATIENT
  Age: 51 Day
  Sex: Male
  Weight: 5.5 kg

DRUGS (2)
  1. PRILOCAINE AND LIDOCAINE [Suspect]
     Active Substance: LIDOCAINE\PRILOCAINE
     Indication: CIRCUMCISION
     Dosage: EMLA CREME, 3/4 TUBE 30 G EMLA-CREME LOKAL CREAM
     Route: 003
     Dates: start: 20190530, end: 20190601
  2. ERGOCALCIFEROL. [Concomitant]
     Active Substance: ERGOCALCIFEROL
     Indication: PRODUCT USED FOR UNKNOWN INDICATION
     Dosage: 500 INTERNATIONAL UNIT
     Route: 065

REACTIONS (7)
  - Accidental overdose [Recovered/Resolved]
  - Methaemoglobinaemia [Recovered/Resolved]
  - Off label use [Unknown]
  - Blood methaemoglobin [Recovered/Resolved]
  - Product administration error [Recovered/Resolved]
  - Peripheral coldness [Recovered/Resolved]
  - Cyanosis [Recovered/Resolved]

NARRATIVE: CASE EVENT DATE: 20190601
